FAERS Safety Report 5962065-5 (Version None)
Quarter: 2008Q4

REPORT INFORMATION
  Report Type: 
  Country: None (occurrence: None)
  Receive Date: 20081121
  Receipt Date: 20081113
  Transmission Date: 20090506
  Serious: Yes (Hospitalization)
  Sender: FDA-Public Use
  Company Number: BE-SANOFI-SYNTHELABO-F01200801727

PATIENT
  Sex: Male
  Weight: 72 kg

DRUGS (4)
  1. LIPITOR [Concomitant]
     Dosage: 10 MG
  2. ZANTAC [Concomitant]
     Dosage: 300 MG
     Dates: start: 20060628, end: 20060901
  3. DUOVENT [Concomitant]
     Dosage: 4 PUFFS
     Route: 055
     Dates: start: 20060705, end: 20060901
  4. ELOXATIN [Suspect]
     Indication: COLON CANCER METASTATIC
     Dosage: 874 MG
     Route: 033
     Dates: start: 20060628, end: 20060628

REACTIONS (1)
  - SMALL INTESTINAL PERFORATION [None]
